FAERS Safety Report 9359431 (Version 1)
Quarter: 2013Q2

REPORT INFORMATION
  Report Type: Spontaneous
  Country: US (occurrence: US)
  Receive Date: 20130620
  Receipt Date: 20130620
  Transmission Date: 20140414
  Serious: No
  Sender: FDA-Public Use
  Company Number: US-US-EMD SERONO, INC.-7198046

PATIENT
  Age: 41 Year
  Sex: Female
  Weight: 52 kg

DRUGS (3)
  1. REBIF [Suspect]
     Indication: MULTIPLE SCLEROSIS
     Route: 058
  2. VITAMIN D3 [Concomitant]
     Indication: PRODUCT USED FOR UNKNOWN INDICATION
  3. MULTIVITAMIN [Concomitant]
     Indication: PRODUCT USED FOR UNKNOWN INDICATION

REACTIONS (9)
  - Abnormal dreams [Unknown]
  - Hallucination [Unknown]
  - Dry mouth [Unknown]
  - Mood swings [Unknown]
  - Contusion [Unknown]
  - Fatigue [Unknown]
  - Myalgia [Unknown]
  - Chills [Unknown]
  - Depression [Not Recovered/Not Resolved]
